FAERS Safety Report 15050697 (Version 2)
Quarter: 2020Q2

REPORT INFORMATION
  Report Type: Spontaneous
  Country: US (occurrence: US)
  Receive Date: 20180622
  Receipt Date: 20200616
  Transmission Date: 20200713
  Serious: Yes (Other)
  Sender: FDA-Public Use
  Company Number: US-ASTELLAS-2017US049786

PATIENT
  Sex: Female

DRUGS (1)
  1. VESICARE [Suspect]
     Active Substance: SOLIFENACIN SUCCINATE
     Indication: HYPERTONIC BLADDER
     Route: 065
     Dates: start: 201711

REACTIONS (7)
  - Tongue discomfort [Recovered/Resolved]
  - Burning sensation [Recovered/Resolved]
  - Night sweats [Recovered/Resolved]
  - Blood pressure systolic increased [Unknown]
  - Vulvovaginal burning sensation [Recovered/Resolved]
  - Oral discomfort [Recovered/Resolved]
  - Swelling [Recovered/Resolved]

NARRATIVE: CASE EVENT DATE: 201711
